FAERS Safety Report 9167986 (Version 8)
Quarter: 2014Q2

REPORT INFORMATION
  Report Type: Spontaneous
  Country: US (occurrence: US)
  Receive Date: 20130318
  Receipt Date: 20140502
  Transmission Date: 20141212
  Serious: Yes (Hospitalization, Other)
  Sender: FDA-Public Use
  Company Number: US-009507513-1303USA007585

PATIENT
  Sex: Female
  Weight: 68.27 kg

DRUGS (3)
  1. FOSAMAX [Suspect]
     Indication: OSTEOPOROSIS
     Dosage: UNK
     Route: 048
     Dates: start: 200608, end: 201207
  2. FOSAMAX PLUS D [Suspect]
     Indication: OSTEOPENIA
     Dosage: 70 MG, UNK
     Route: 048
     Dates: start: 20060818, end: 20090307
  3. ALENDRONATE SODIUM [Suspect]
     Indication: OSTEOPENIA
     Dosage: 70 MG, UNK
     Route: 048
     Dates: start: 20090413, end: 201207

REACTIONS (15)
  - Intramedullary rod insertion [Unknown]
  - Bladder operation [Unknown]
  - Atypical femur fracture [Unknown]
  - Blood cholesterol increased [Unknown]
  - Cyst [Unknown]
  - Scoliosis [Unknown]
  - Primary hypothyroidism [Unknown]
  - Carotid artery stenosis [Unknown]
  - Sleep apnoea syndrome [Unknown]
  - Fall [Unknown]
  - Muscle injury [Unknown]
  - Spondylitis [Unknown]
  - Blood alkaline phosphatase increased [Unknown]
  - Constipation [Unknown]
  - Dyspepsia [Unknown]
